FAERS Safety Report 14597776 (Version 1)
Quarter: 2018Q1

REPORT INFORMATION
  Report Type: Spontaneous
  Country: DE (occurrence: DE)
  Receive Date: 20180305
  Receipt Date: 20180305
  Transmission Date: 20180509
  Serious: Yes (Congenital Anomaly, Other)
  Sender: FDA-Public Use
  Company Number: DE-DRREDDYS-GER/GER/18/0096563

PATIENT
  Age: 1 Day
  Sex: Male
  Weight: 2.94 kg

DRUGS (10)
  1. DULOXETINE. [Suspect]
     Active Substance: DULOXETINE
     Indication: DEPRESSION
     Route: 064
     Dates: start: 20160810, end: 20170429
  2. ARIPIPRAZOLE. [Concomitant]
     Active Substance: ARIPIPRAZOLE
     Indication: PSYCHOTIC DISORDER
     Dosage: 60 [MG/D ]/ INITIAL 60MG/D, WEEK 7+2 TO 10+2 30MG/D, THEN INCREASE TO 60MG/D UNTIL DELIVERY
     Route: 064
     Dates: start: 20160810, end: 20160929
  3. FOLSAEURE [Concomitant]
     Active Substance: FOLIC ACID
     Indication: PROPHYLAXIS OF NEURAL TUBE DEFECT
     Route: 064
     Dates: start: 20160920, end: 20170429
  4. NOVORAPID [Concomitant]
     Active Substance: INSULIN ASPART
     Indication: GESTATIONAL DIABETES
     Dosage: 60 [MG/D ]/ INITIAL 60MG/D, WEEK 7+2 TO 10+2 30MG/D, THEN INCREASE TO 60MG/D UNTIL DELIVERY
     Route: 064
  5. OMEPRAZOLE. [Concomitant]
     Active Substance: OMEPRAZOLE
     Indication: VOMITING IN PREGNANCY
     Dosage: 60 [MG/D ]/ INITIAL 60MG/D, WEEK 7+2 TO 10+2 30MG/D, THEN INCREASE TO 60MG/D UNTIL DELIVERY
     Route: 064
     Dates: start: 20160929, end: 20170429
  6. PRESINOL 250 [Concomitant]
     Indication: GESTATIONAL HYPERTENSION
     Dosage: 60 [MG/D ]/ INITIAL 60MG/D, WEEK 7+2 TO 10+2 30MG/D, THEN INCREASE TO 60MG/D UNTIL DELIVERY
     Route: 064
  7. LANTUS [Concomitant]
     Active Substance: INSULIN GLARGINE
     Indication: GESTATIONAL DIABETES
     Dosage: 60 [MG/D ]/ INITIAL 60MG/D, WEEK 7+2 TO 10+2 30MG/D, THEN INCREASE TO 60MG/D UNTIL DELIVERY
     Route: 064
  8. DULOXETINE. [Suspect]
     Active Substance: DULOXETINE
     Route: 064
  9. DULOXETINE. [Suspect]
     Active Substance: DULOXETINE
     Route: 064
  10. L-THYROXIN [Concomitant]
     Active Substance: LEVOTHYROXINE SODIUM
     Indication: HYPOTHYROIDISM
     Dosage: 60 [MG/D ]/ INITIAL 60MG/D, WEEK 7+2 TO 10+2 30MG/D, THEN INCREASE TO 60MG/D UNTIL DELIVERY
     Route: 064
     Dates: start: 20160810, end: 20170429

REACTIONS (2)
  - Hypospadias [Not Recovered/Not Resolved]
  - Foetal exposure during pregnancy [Unknown]
